FAERS Safety Report 8246718-4 (Version None)
Quarter: 2012Q1

REPORT INFORMATION
  Report Type: 
  Country: None (occurrence: None)
  Receive Date: 20120316
  Receipt Date: 20090428
  Transmission Date: 20120608
  Serious: Yes (Other)
  Sender: FDA-Public Use
  Company Number: PHEH2009US04189

PATIENT

DRUGS (2)
  1. DIOVAN HCT [Suspect]
     Dosage: 320/25
  2. TEKTURNA [Suspect]
     Dosage: 300 MG

REACTIONS (2)
  - DRUG INEFFECTIVE [None]
  - BLOOD PRESSURE INCREASED [None]
